FAERS Safety Report 5234185-4 (Version None)
Quarter: 2007Q1

REPORT INFORMATION
  Report Type: 
  Country: None (occurrence: None)
  Receive Date: 20070209
  Receipt Date: 20070131
  Transmission Date: 20070707
  Serious: Yes (Life-Threatening)
  Sender: FDA-Public Use
  Company Number: AU-JNJFOC-20061103072

PATIENT
  Age: 69 Year
  Sex: Female

DRUGS (4)
  1. TRAMADOL HCL [Suspect]
     Indication: PAIN
     Route: 042
  2. CABERGOLINE [Concomitant]
     Indication: RESTLESS LEGS SYNDROME
     Route: 065
  3. RAMIPRIL [Concomitant]
     Indication: HYPERTENSION
     Route: 065
  4. PREGABALIN [Concomitant]
     Indication: RESTLESS LEGS SYNDROME
     Route: 065

REACTIONS (1)
  - HYPERTENSIVE CRISIS [None]
